FAERS Safety Report 4705760-8 (Version None)
Quarter: 2005Q3

REPORT INFORMATION
  Report Type: 
  Country: None (occurrence: None)
  Receive Date: 20050701
  Receipt Date: 20050315
  Transmission Date: 20060218
  Serious: Yes (Other)
  Sender: FDA-Public Use
  Company Number: US-MERCK-0503USA03197

PATIENT
  Sex: Female
  Weight: 105 kg

DRUGS (5)
  1. VIOXX [Suspect]
     Indication: ARTHRITIS
     Route: 048
     Dates: start: 20000101, end: 20030101
  2. ASPIRIN [Concomitant]
     Route: 065
     Dates: start: 20000101, end: 20030101
  3. PREMARIN [Concomitant]
     Indication: MENOPAUSE
     Route: 065
     Dates: start: 19830101, end: 20020101
  4. NEXIUM [Concomitant]
     Route: 065
  5. PAXIL [Concomitant]
     Route: 065

REACTIONS (6)
  - BLOOD TRIGLYCERIDES INCREASED [None]
  - FIBROMYALGIA [None]
  - GASTROOESOPHAGEAL REFLUX DISEASE [None]
  - HAEMATOCHEZIA [None]
  - HYPERTENSION [None]
  - PULMONARY EMBOLISM [None]
